FAERS Safety Report 4380590-8 (Version None)
Quarter: 2004Q2

REPORT INFORMATION
  Report Type: 
  Country: None (occurrence: None)
  Receive Date: 20040610
  Receipt Date: 20040227
  Transmission Date: 20050107
  Serious: Yes (Hospitalization)
  Sender: FDA-Public Use
  Company Number: A03200400632

PATIENT
  Age: 63 Year
  Sex: Female
  Weight: 77.5651 kg

DRUGS (12)
  1. ELOXATIN [Suspect]
     Indication: COLON CANCER
     Dosage: SEE IMAGE
     Route: 042
     Dates: start: 20040217, end: 20040217
  2. ELOXATIN [Suspect]
     Indication: METASTASES TO LIVER
     Dosage: SEE IMAGE
     Route: 042
     Dates: start: 20040217, end: 20040217
  3. ELOXATIN [Suspect]
     Indication: METASTASES TO LUNG
     Dosage: SEE IMAGE
     Route: 042
     Dates: start: 20040217, end: 20040217
  4. FLUOROUCIL [Concomitant]
  5. LEUCOVORIN [Concomitant]
  6. DOLASETRON MESILATE [Concomitant]
  7. DEXAMETHASONE [Concomitant]
  8. FOLINIC ACID [Concomitant]
  9. ATENOLOL [Concomitant]
  10. PROMETHAZINE HCL [Concomitant]
  11. ALPRAZOLAM [Concomitant]
  12. WARFARIN SODIUM [Concomitant]

REACTIONS (4)
  - CHEST DISCOMFORT [None]
  - DYSPNOEA [None]
  - HYPOTENSION [None]
  - OXYGEN SATURATION DECREASED [None]
